FAERS Safety Report 4790335-5 (Version None)
Quarter: 2005Q4

REPORT INFORMATION
  Report Type: 
  Country: None (occurrence: None)
  Receive Date: 20051005
  Receipt Date: 20050921
  Transmission Date: 20060501
  Serious: Yes (Death)
  Sender: FDA-Public Use
  Company Number: SUS1-2005-00599

PATIENT
  Age: 28 Year
  Sex: Male
  Weight: 120.6 kg

DRUGS (5)
  1. EQUETRO [Suspect]
     Indication: BIPOLAR DISORDER
     Dosage: 1000 MG, ORAL
     Route: 048
     Dates: start: 20050718
  2. LORAZEPAM [Concomitant]
  3. ESOMEPRAZOLE MAGNESIUM (ESOMEPRAZOLE MAGNESIUM) [Concomitant]
  4. IBUPROFEN [Concomitant]
  5. LANSOPRAZOLE [Concomitant]

REACTIONS (8)
  - ACCIDENTAL OVERDOSE [None]
  - ANTICONVULSANT DRUG LEVEL BELOW THERAPEUTIC [None]
  - ARTERIOSCLEROSIS [None]
  - CARDIOMEGALY [None]
  - CORONARY ARTERY STENOSIS [None]
  - INCORRECT ROUTE OF DRUG ADMINISTRATION [None]
  - INTENTIONAL DRUG MISUSE [None]
  - WRONG DRUG ADMINISTERED [None]
